FAERS Safety Report 16773099 (Version 1)
Quarter: 2019Q3

REPORT INFORMATION
  Report Type: Spontaneous
  Country: RO (occurrence: RO)
  Receive Date: 20190904
  Receipt Date: 20190904
  Transmission Date: 20191005
  Serious: Yes (Congenital Anomaly, Other)
  Sender: FDA-Public Use
  Company Number: RO-BAUSCH-BL-2019-025134

PATIENT
  Sex: Female

DRUGS (14)
  1. METRONIDAZOLE. [Suspect]
     Active Substance: METRONIDAZOLE
     Indication: CHOLANGITIS ACUTE
     Route: 064
  2. MEDROL [Suspect]
     Active Substance: METHYLPREDNISOLONE
     Route: 064
  3. MEDROL [Suspect]
     Active Substance: METHYLPREDNISOLONE
     Indication: FOETAL EXPOSURE DURING PREGNANCY
     Dosage: TABLET MATERNAL DOSE
     Route: 064
  4. SOLU-MEDROL [Suspect]
     Active Substance: METHYLPREDNISOLONE SODIUM SUCCINATE
     Route: 064
  5. SOLU-MEDROL [Suspect]
     Active Substance: METHYLPREDNISOLONE SODIUM SUCCINATE
     Route: 064
  6. MEROPENEM. [Suspect]
     Active Substance: MEROPENEM
     Indication: FOETAL EXPOSURE DURING PREGNANCY
     Route: 064
  7. MEROPENEM. [Suspect]
     Active Substance: MEROPENEM
     Indication: CHOLANGITIS ACUTE
  8. MEDROL [Suspect]
     Active Substance: METHYLPREDNISOLONE
     Route: 064
  9. SOLU-MEDROL [Suspect]
     Active Substance: METHYLPREDNISOLONE SODIUM SUCCINATE
     Indication: FOETAL EXPOSURE DURING PREGNANCY
     Route: 064
  10. TACROLIMUS. [Suspect]
     Active Substance: TACROLIMUS
     Indication: FOETAL EXPOSURE DURING PREGNANCY
     Route: 064
  11. SOLU-MEDROL [Suspect]
     Active Substance: METHYLPREDNISOLONE SODIUM SUCCINATE
     Route: 064
  12. TACROLIMUS. [Suspect]
     Active Substance: TACROLIMUS
     Route: 064
  13. TACROLIMUS. [Suspect]
     Active Substance: TACROLIMUS
     Route: 064
  14. TACROLIMUS. [Suspect]
     Active Substance: TACROLIMUS
     Route: 064

REACTIONS (5)
  - Apgar score low [Recovered/Resolved]
  - Congenital choroid plexus cyst [Recovered/Resolved]
  - Foetal exposure during pregnancy [Unknown]
  - Low birth weight baby [Recovered/Resolved]
  - Calcification of muscle [Recovered/Resolved]
